FAERS Safety Report 6406965-0 (Version None)
Quarter: 2009Q4

REPORT INFORMATION
  Report Type: 
  Country: None (occurrence: None)
  Receive Date: 20091020
  Receipt Date: 20091008
  Transmission Date: 20100525
  Serious: Yes (Hospitalization)
  Sender: FDA-Public Use
  Company Number: JP-PFIZER INC-2009225596

PATIENT
  Age: 81 Year

DRUGS (4)
  1. FARMORUBICIN [Suspect]
     Indication: HEPATIC NEOPLASM MALIGNANT
     Dosage: TDD: 35 MG
     Dates: start: 20090529, end: 20090529
  2. LIPIODOL ULTRA-FLUID [Concomitant]
     Dosage: 3.5 ML
     Dates: start: 20090529, end: 20090529
  3. MOHRUS [Concomitant]
     Indication: BACK PAIN
     Route: 062
  4. HALCION [Concomitant]
     Indication: INSOMNIA
     Route: 048

REACTIONS (3)
  - BACTERAEMIA [None]
  - CELLULITIS [None]
  - HEPATITIS [None]
